FAERS Safety Report 4698054-0 (Version None)
Quarter: 2005Q2

REPORT INFORMATION
  Report Type: 
  Country: None (occurrence: None)
  Receive Date: 20050621
  Receipt Date: 20050617
  Transmission Date: 20051028
  Serious: Yes (Other)
  Sender: FDA-Public Use
  Company Number: TCI2005A02800

PATIENT
  Age: 74 Year
  Sex: Male

DRUGS (3)
  1. LEUPROLIDE ACETATE [Suspect]
     Indication: PROSTATE CANCER
     Dosage: 3.75 MG SUBCUTANEOUS
     Route: 058
     Dates: start: 20000323, end: 20020925
  2. FLUTAMIDE [Suspect]
     Indication: PROSTATE CANCER
     Dosage: 3.75 PER ORAL
     Route: 048
     Dates: start: 20000323, end: 20010601
  3. CASODEX [Suspect]
     Dosage: PER ORAL
     Route: 048
     Dates: start: 20010901

REACTIONS (3)
  - GASTRIC CANCER [None]
  - HEPATIC NEOPLASM MALIGNANT [None]
  - PROSTATIC SPECIFIC ANTIGEN INCREASED [None]
